FAERS Safety Report 5688138-2 (Version None)
Quarter: 2008Q1

REPORT INFORMATION
  Report Type: 
  Country: None (occurrence: None)
  Receive Date: 20080327
  Receipt Date: 20080317
  Transmission Date: 20080703
  Serious: Yes (Disabling)
  Sender: FDA-Public Use
  Company Number: 056-21880-08020797

PATIENT
  Sex: Male

DRUGS (3)
  1. REVLIMID [Suspect]
     Indication: 5Q-SYNDROME
     Dosage: 10-5MG, DAILY 21 DAYS, ORAL, 5 MG, 4 TIMES PER WEEK, ORAL
     Route: 048
     Dates: start: 20070101
  2. REVLIMID [Suspect]
     Indication: 5Q-SYNDROME
     Dosage: 10-5MG, DAILY 21 DAYS, ORAL, 5 MG, 4 TIMES PER WEEK, ORAL
     Route: 048
     Dates: start: 20070615
  3. ALACAND [Concomitant]

REACTIONS (3)
  - CONSTIPATION [None]
  - FATIGUE [None]
  - WEIGHT INCREASED [None]
